FAERS Safety Report 8202570-4 (Version None)
Quarter: 2012Q1

REPORT INFORMATION
  Report Type: 
  Country: None (occurrence: None)
  Receive Date: 20120312
  Receipt Date: 20120305
  Transmission Date: 20120608
  Serious: Yes (Other)
  Sender: FDA-Public Use
  Company Number: PHHY2012AU019392

PATIENT
  Age: 18 Year
  Sex: Male

DRUGS (2)
  1. FLUOXETINE [Suspect]
     Indication: RESPIRATORY DISTRESS
     Dosage: 10 MG, QD
  2. CANNABIS [Interacting]
     Indication: RESPIRATORY DISTRESS
     Dosage: UNK UKN, UNK

REACTIONS (10)
  - AKATHISIA [None]
  - FEELING ABNORMAL [None]
  - INSOMNIA [None]
  - SUICIDAL IDEATION [None]
  - DEPRESSION [None]
  - DRUG INTERACTION [None]
  - AGGRESSION [None]
  - CRYING [None]
  - PARANOIA [None]
  - HOMICIDE [None]
